FAERS Safety Report 20693697 (Version 2)
Quarter: 2022Q2

REPORT INFORMATION
  Report Type: Spontaneous
  Country: RU (occurrence: RU)
  Receive Date: 20220411
  Receipt Date: 20220502
  Transmission Date: 20220721
  Serious: Yes (Other)
  Sender: FDA-Public Use
  Company Number: RU-CIPLA LTD.-2022RU02104

PATIENT

DRUGS (3)
  1. ATAZANAVIR [Suspect]
     Active Substance: ATAZANAVIR
     Indication: HIV infection
     Dosage: 400 MG/DAY, 1 COURSE
     Route: 048
     Dates: start: 20200925
  2. LAMIVUDINE [Suspect]
     Active Substance: LAMIVUDINE
     Indication: HIV infection
     Dosage: 300 MG/DAY, 1 COURSE
     Route: 048
     Dates: start: 20160330
  3. TIVICAY [Suspect]
     Active Substance: DOLUTEGRAVIR SODIUM
     Indication: HIV infection
     Dosage: 50 MG/DAY, 1 COURSE
     Route: 048
     Dates: start: 20200925

REACTIONS (2)
  - Foetal death [Unknown]
  - Exposure during pregnancy [Unknown]
